FAERS Safety Report 13189325 (Version 1)
Quarter: 2017Q1

REPORT INFORMATION
  Report Type: Spontaneous
  Country: US (occurrence: US)
  Receive Date: 20170204
  Receipt Date: 20170204
  Transmission Date: 20170509
  Serious: Yes (Hospitalization)
  Sender: FDA-Public Use
  Company Number: None

PATIENT
  Age: 55 Year
  Sex: Male
  Weight: 121.7 kg

DRUGS (2)
  1. ACETAMINOPHEN/HYDROCODONE [Suspect]
     Active Substance: ACETAMINOPHEN\HYDROCODONE
     Indication: PAIN
     Route: 048
     Dates: start: 20160112, end: 20161007
  2. DIVALPROEX [Suspect]
     Active Substance: DIVALPROEX SODIUM
     Indication: SEIZURE
     Route: 048
     Dates: start: 20150207

REACTIONS (4)
  - Anticonvulsant drug level abnormal [None]
  - Mental status changes [None]
  - Hyperammonaemia [None]
  - Constipation [None]

NARRATIVE: CASE EVENT DATE: 20170108
